FAERS Safety Report 5959493-0 (Version None)
Quarter: 2008Q4

REPORT INFORMATION
  Report Type: 
  Country: None (occurrence: None)
  Receive Date: 20081120
  Receipt Date: 20081112
  Transmission Date: 20090506
  Serious: Yes (Hospitalization, Other)
  Sender: FDA-Public Use
  Company Number: US-ROCHE-588262

PATIENT
  Sex: Female
  Weight: 86.6 kg

DRUGS (5)
  1. CAPECITABINE [Suspect]
     Indication: BREAST CANCER
     Dosage: 5 TABLETS DAILY
     Route: 065
     Dates: start: 20070417, end: 20080901
  2. CAPECITABINE [Suspect]
     Dosage: LOWERED TO 1 DAILY
     Route: 065
  3. TRASTUZUMAB [Suspect]
     Indication: DRUG USE FOR UNKNOWN INDICATION
     Route: 065
     Dates: start: 20080927
  4. TYKERB [Suspect]
     Indication: DRUG USE FOR UNKNOWN INDICATION
     Route: 065
     Dates: start: 20070401, end: 20080901
  5. TYKERB [Suspect]
     Route: 065
     Dates: start: 20080927

REACTIONS (5)
  - BLISTER [None]
  - DIARRHOEA [None]
  - DISEASE PROGRESSION [None]
  - RASH PUSTULAR [None]
  - SKIN EXFOLIATION [None]
